FAERS Safety Report 9797935 (Version 1)
Quarter: 2014Q1

REPORT INFORMATION
  Report Type: Spontaneous
  Country: US (occurrence: None)
  Receive Date: 20140102
  Receipt Date: 20140102
  Transmission Date: 20141002
  Serious: No
  Sender: FDA-Public Use
  Company Number: None

PATIENT
  Age: 61 Year
  Sex: Male

DRUGS (1)
  1. HUMIRA SYRINGE 40MG ABBVIE [Suspect]
     Indication: RHEUMATOID ARTHRITIS
     Dosage: 40MG, QOW, SQ
     Dates: start: 20121101, end: 20131213

REACTIONS (1)
  - Red blood cell count decreased [None]
